FAERS Safety Report 21120794 (Version 1)
Quarter: 2022Q3

REPORT INFORMATION
  Report Type: Report from Study
  Country: US (occurrence: US)
  Receive Date: 20220722
  Receipt Date: 20220722
  Transmission Date: 20221027
  Serious: Yes (Other)
  Sender: FDA-Public Use
  Company Number: US-HLS-202200843

PATIENT

DRUGS (1)
  1. CLOZARIL [Suspect]
     Active Substance: CLOZAPINE
     Indication: Product used for unknown indication
     Dosage: FOR A FEW DECADES
     Route: 048

REACTIONS (2)
  - Neutrophil count [Unknown]
  - Breast cancer [Not Recovered/Not Resolved]
